FAERS Safety Report 9063721 (Version 1)
Quarter: 2013Q1

REPORT INFORMATION
  Report Type: Report from Study
  Country: US (occurrence: US)
  Receive Date: 20130129
  Receipt Date: 20130129
  Transmission Date: 20140127
  Serious: No
  Sender: FDA-Public Use
  Company Number: US-ABBOTT-12P-163-0947341-00

PATIENT
  Age: 47 Year
  Sex: Male

DRUGS (4)
  1. HUMIRA 40 MG/0.8 ML PEN [Suspect]
     Indication: CROHN^S DISEASE
     Dates: start: 20110811
  2. UNSPECIFIED INGREDIENT [Suspect]
     Indication: NASAL CONGESTION
  3. PROTONIX [Concomitant]
     Indication: GASTROOESOPHAGEAL REFLUX DISEASE
  4. ZOLPIDEM [Concomitant]
     Indication: INSOMNIA

REACTIONS (6)
  - Somnolence [Not Recovered/Not Resolved]
  - Nausea [Not Recovered/Not Resolved]
  - Eustachian tube obstruction [Recovering/Resolving]
  - Eustachian tube stenosis [Not Recovered/Not Resolved]
  - Nasal congestion [Recovering/Resolving]
  - Arthralgia [Not Recovered/Not Resolved]
